FAERS Safety Report 21376219 (Version 1)
Quarter: 2022Q3

REPORT INFORMATION
  Report Type: Spontaneous
  Country: US (occurrence: None)
  Receive Date: 20220923
  Receipt Date: 20220923
  Transmission Date: 20221026
  Serious: Yes (Other)
  Sender: FDA-Public Use
  Company Number: None

PATIENT
  Age: 34 Year
  Sex: Female
  Weight: 60 kg

DRUGS (2)
  1. FLONASE SENSIMIST ALLERGY RELIEF [Suspect]
     Active Substance: FLUTICASONE FUROATE
     Indication: Multiple allergies
     Dosage: OTHER QUANTITY : 2 SPRAY(S);?FREQUENCY : AT BEDTIME;?
     Route: 055
  2. FLONASE SENSIMIST ALLERGY RELIEF [Suspect]
     Active Substance: FLUTICASONE FUROATE
     Indication: Ear discomfort

REACTIONS (2)
  - Vertigo [None]
  - Dizziness [None]

NARRATIVE: CASE EVENT DATE: 20220809
